FAERS Safety Report 5479962-X (Version None)
Quarter: 2007Q4

REPORT INFORMATION
  Report Type: 
  Country: None (occurrence: None)
  Receive Date: 20071008
  Receipt Date: 20071004
  Transmission Date: 20080405
  Serious: Yes (Disabling)
  Sender: FDA-Public Use
  Company Number: GB-MERCK-0710GBR00019

PATIENT
  Age: 68 Year
  Sex: Male

DRUGS (4)
  1. ZOCOR [Suspect]
     Indication: CORONARY ARTERY BYPASS
     Route: 048
     Dates: start: 20070701, end: 20070827
  2. ZOCOR [Suspect]
     Indication: PROPHYLAXIS
     Route: 048
     Dates: start: 20070701, end: 20070827
  3. ASPIRIN [Concomitant]
     Indication: CORONARY ARTERY BYPASS
     Route: 048
     Dates: start: 20000101
  4. RAMIPRIL [Concomitant]
     Indication: BLOOD PRESSURE INCREASED
     Route: 048
     Dates: start: 20000601

REACTIONS (3)
  - AFFECTIVE DISORDER [None]
  - FEELING ABNORMAL [None]
  - TEARFULNESS [None]
